FAERS Safety Report 17514004 (Version 1)
Quarter: 2020Q1

REPORT INFORMATION
  Report Type: Spontaneous
  Country: SE (occurrence: SE)
  Receive Date: 20200306
  Receipt Date: 20200306
  Transmission Date: 20200409
  Serious: Yes (Other)
  Sender: FDA-Public Use
  Company Number: SE-BAXTER-2020BAX005320

PATIENT
  Age: 8 Decade
  Sex: Female

DRUGS (2)
  1. DACARBAZINE. [Suspect]
     Active Substance: DACARBAZINE
     Indication: LEIOMYOSARCOMA
     Route: 065
     Dates: start: 2019, end: 2019
  2. DOXIL [Suspect]
     Active Substance: DOXORUBICIN HYDROCHLORIDE
     Indication: LEIOMYOSARCOMA
     Route: 065
     Dates: start: 2019, end: 2019

REACTIONS (1)
  - Leiomyosarcoma [Unknown]

NARRATIVE: CASE EVENT DATE: 2019
